FAERS Safety Report 24414711 (Version 1)
Quarter: 2024Q4

REPORT INFORMATION
  Report Type: Spontaneous
  Country: DK (occurrence: None)
  Receive Date: 20241009
  Receipt Date: 20241009
  Transmission Date: 20250115
  Serious: Yes (Hospitalization, Other)
  Sender: MAIA PHARMACEUTICALS
  Company Number: DK-MAIA Pharmaceuticals, Inc.-MAI202410-000059

PATIENT
  Age: 49 Year
  Sex: Female

DRUGS (2)
  1. BACLOFEN [Suspect]
     Active Substance: BACLOFEN
     Indication: Product used for unknown indication
     Dosage: 300 MG (30 TABLET OF 10 MG)
     Route: 065
  2. MIDAZOLAM [Concomitant]
     Active Substance: MIDAZOLAM
     Indication: Product used for unknown indication
     Dosage: 2.5 MG
     Route: 065

REACTIONS (3)
  - Status epilepticus [Recovered/Resolved]
  - Toxicity to various agents [Unknown]
  - Intentional product misuse [Unknown]
